FAERS Safety Report 23887103 (Version 1)
Quarter: 2024Q2

REPORT INFORMATION
  Report Type: Other
  Country: CA (occurrence: None)
  Receive Date: 20240523
  Receipt Date: 20240523
  Transmission Date: 20240716
  Serious: Yes (Hospitalization)
  Sender: FDA-Public Use
  Company Number: CA-ROCHE-2506215

PATIENT
  Age: 40 Year
  Sex: Male

DRUGS (3)
  1. OCREVUS [Suspect]
     Active Substance: OCRELIZUMAB
     Indication: Primary progressive multiple sclerosis
     Dosage: 300 MG AT DAY 0 AND 14, THEN 600 MG EVERY 6 MONTH
     Route: 042
     Dates: start: 20181220
  2. BACLOFEN [Concomitant]
     Active Substance: BACLOFEN
  3. ASPIRIN [Concomitant]
     Active Substance: ASPIRIN

REACTIONS (4)
  - Urinary tract infection [Unknown]
  - Hypoaesthesia [Unknown]
  - Pyrexia [Unknown]
  - Nasopharyngitis [Unknown]

NARRATIVE: CASE EVENT DATE: 20191201
